FAERS Safety Report 12553059 (Version 1)
Quarter: 2016Q3

REPORT INFORMATION
  Report Type: Spontaneous
  Country: FR (occurrence: FR)
  Receive Date: 20160713
  Receipt Date: 20160713
  Transmission Date: 20161109
  Serious: Yes (Hospitalization, Other)
  Sender: FDA-Public Use
  Company Number: FR-PFIZER INC-2016329995

PATIENT
  Age: 48 Year
  Sex: Female

DRUGS (4)
  1. FUMAFER [Suspect]
     Active Substance: FERROUS FUMARATE
     Dosage: UNK
     Route: 048
     Dates: start: 20160415, end: 20160502
  2. ALDACTONE [Suspect]
     Active Substance: SPIRONOLACTONE
     Dosage: 50 MG, 1X/DAY
     Route: 048
     Dates: start: 20160401, end: 20160501
  3. RAMIPRIL MYLAN [Suspect]
     Active Substance: RAMIPRIL
     Dosage: 1.25 MG, 1X/DAY
     Route: 048
     Dates: start: 20160331, end: 20160501
  4. TRILEPTAL [Suspect]
     Active Substance: OXCARBAZEPINE
     Indication: EPILEPSY
     Dosage: 300 MG, 2X/DAY
     Route: 048
     Dates: start: 20160318, end: 20160502

REACTIONS (2)
  - Septic shock [Unknown]
  - Drug reaction with eosinophilia and systemic symptoms [Recovered/Resolved]

NARRATIVE: CASE EVENT DATE: 2016
